FAERS Safety Report 6429826-X (Version None)
Quarter: 2009Q4

REPORT INFORMATION
  Report Type: 
  Country: None (occurrence: None)
  Receive Date: 20091104
  Receipt Date: 20091104
  Transmission Date: 20100525
  Serious: Yes (Hospitalization)
  Sender: FDA-Public Use
  Company Number: None

PATIENT
  Age: 63 Year
  Sex: Male
  Weight: 86.3 kg

DRUGS (2)
  1. TRAMADOL HCL [Suspect]
     Indication: PAIN
     Dosage: 50 MG TID PO
     Route: 048
     Dates: start: 20090611, end: 20090619
  2. LISINOPRIL [Suspect]
     Indication: HYPERTENSION
     Dosage: 40 MG PM PO
     Route: 048
     Dates: start: 20050705, end: 20090619

REACTIONS (2)
  - ANGIOEDEMA [None]
  - LIP SWELLING [None]
